FAERS Safety Report 6254296-4 (Version None)
Quarter: 2009Q3

REPORT INFORMATION
  Report Type: 
  Country: None (occurrence: None)
  Receive Date: 20090702
  Receipt Date: 20090625
  Transmission Date: 20100115
  Serious: Yes (Other)
  Sender: FDA-Public Use
  Company Number: US-SOLVAY-00209003424

PATIENT
  Age: 61 Year
  Sex: Male
  Weight: 84.09 kg

DRUGS (3)
  1. PREDNISONE [Concomitant]
     Indication: CHRONIC OBSTRUCTIVE PULMONARY DISEASE
     Dosage: DAILY DOSE:  UNKNOWN
     Route: 048
  2. ANDROGEL [Suspect]
     Indication: MUSCLE MASS
     Dosage: DAILY DOSE: 5 GRAM(S)
     Route: 062
  3. LIPITOR [Concomitant]
     Indication: BLOOD TRIGLYCERIDES INCREASED
     Dosage: DAILY DOSE:  UNKNOWN
     Route: 048

REACTIONS (4)
  - PROSTATE CANCER [None]
  - PROSTATIC DISORDER [None]
  - PROSTATIC SPECIFIC ANTIGEN ABNORMAL [None]
  - PROSTATOMEGALY [None]
